FAERS Safety Report 6934499-3 (Version None)
Quarter: 2010Q3

REPORT INFORMATION
  Report Type: 
  Country: None (occurrence: None)
  Receive Date: 20100820
  Receipt Date: 20100813
  Transmission Date: 20110219
  Serious: Yes (Hospitalization, Other)
  Sender: FDA-Public Use
  Company Number: GB-AMGEN-KDC431073

PATIENT
  Sex: Female

DRUGS (6)
  1. VECTIBIX [Suspect]
     Indication: GASTROOESOPHAGEAL CANCER
     Dates: start: 20100628
  2. NEUPOGEN [Suspect]
  3. SERTRALINE HYDROCHLORIDE [Concomitant]
  4. EPIRUBICIN [Concomitant]
     Dates: start: 20100621
  5. OXALIPLATIN [Concomitant]
     Dates: start: 20100621
  6. CAPECITABINE [Concomitant]
     Dates: start: 20100621

REACTIONS (7)
  - BONE PAIN [None]
  - EMBOLISM ARTERIAL [None]
  - NEUTROPENIA [None]
  - PLEURITIC PAIN [None]
  - PYREXIA [None]
  - TACHYCARDIA [None]
  - URINARY TRACT INFECTION [None]
